FAERS Safety Report 7610253-4 (Version None)
Quarter: 2011Q3

REPORT INFORMATION
  Report Type: 
  Country: None (occurrence: None)
  Receive Date: 20110713
  Receipt Date: 20110713
  Transmission Date: 20111222
  Serious: Yes (Other)
  Sender: FDA-Public Use
  Company Number: None

PATIENT
  Sex: Female
  Weight: 15.1 kg

DRUGS (6)
  1. KINERET [Suspect]
     Indication: JUVENILE ARTHRITIS
     Dosage: 10MG Q DAY SQ 15MG QD 2DAY 30MG Q DAY SQ 100MG Q DAY SQ
     Route: 058
     Dates: start: 20100701, end: 20101101
  2. KINERET [Suspect]
     Indication: JUVENILE ARTHRITIS
     Dosage: 10MG Q DAY SQ 15MG QD 2DAY 30MG Q DAY SQ 100MG Q DAY SQ
     Route: 058
     Dates: start: 20101101, end: 20110401
  3. KINERET [Suspect]
     Indication: JUVENILE ARTHRITIS
     Dosage: 10MG Q DAY SQ 15MG QD 2DAY 30MG Q DAY SQ 100MG Q DAY SQ
     Route: 058
     Dates: start: 20090101, end: 20100501
  4. KINERET [Suspect]
     Indication: JUVENILE ARTHRITIS
     Dosage: 10MG Q DAY SQ 15MG QD 2DAY 30MG Q DAY SQ 100MG Q DAY SQ
     Route: 058
     Dates: start: 20100501, end: 20100701
  5. PREDNISONE [Concomitant]
  6. METHOTREXATE [Concomitant]

REACTIONS (3)
  - EOSINOPHILIA [None]
  - CLUBBING [None]
  - BRONCHIECTASIS [None]
